FAERS Safety Report 4382301-9 (Version None)
Quarter: 2004Q2

REPORT INFORMATION
  Report Type: 
  Country: None (occurrence: None)
  Receive Date: 20040621
  Receipt Date: 20040621
  Transmission Date: 20050107
  Serious: Yes (Death)
  Sender: FDA-Public Use
  Company Number: None

PATIENT
  Age: 70 Year
  Sex: Female

DRUGS (2)
  1. KEFZOL [Suspect]
     Indication: ANTIBACTERIAL PROPHYLAXIS
  2. KEFZOL [Suspect]
     Indication: PREOPERATIVE CARE

REACTIONS (1)
  - ANAPHYLACTIC REACTION [None]
